FAERS Safety Report 7079777-5 (Version None)
Quarter: 2010Q4

REPORT INFORMATION
  Report Type: 
  Country: None (occurrence: None)
  Receive Date: 20101102
  Receipt Date: 20101028
  Transmission Date: 20110411
  Serious: Yes (Death, Other)
  Sender: FDA-Public Use
  Company Number: GB-PFIZER INC-2010137821

PATIENT
  Age: 91 Year
  Sex: Female

DRUGS (12)
  1. DOXYCYCLINE HYCLATE [Suspect]
     Indication: INFECTION
     Dosage: 100 MG, 1X/DAY
     Route: 048
     Dates: start: 20090422, end: 20090422
  2. DOXYCYCLINE HYCLATE [Suspect]
     Dosage: 50 MG, 1X/DAY
     Dates: start: 20090423
  3. LANTUS [Suspect]
     Indication: DIABETES MELLITUS
     Dosage: 12 IU, UNK
     Route: 058
     Dates: start: 20060303
  4. LANTUS [Suspect]
     Dosage: 22 IU, UNK
     Route: 058
  5. DIGOXIN [Concomitant]
     Indication: ANXIETY
     Dosage: 20 MG, UNK
     Route: 048
     Dates: start: 20031107
  6. DIGOXIN [Concomitant]
     Indication: DEPRESSION
  7. DOXYCYCLINE [Concomitant]
     Indication: CARDIAC FAILURE
     Dosage: 25 MG, UNK
     Route: 048
     Dates: start: 20031107
  8. DOXYCYCLINE [Concomitant]
     Indication: HYPERTENSION
  9. FUROSEMIDE [Concomitant]
     Indication: CARDIAC FAILURE
     Dosage: 75 MG, UNK
     Route: 048
  10. FUROSEMIDE [Concomitant]
     Indication: HYPERTENSION
  11. LANTUS [Concomitant]
     Indication: CARDIAC FAILURE
     Dosage: 125 UG, UNK
     Dates: start: 20031107
  12. LANTUS [Concomitant]
     Indication: HYPERTENSION
     Dosage: 40 MG, UNK
     Dates: start: 20060710

REACTIONS (6)
  - APHASIA [None]
  - ASTHENIA [None]
  - DRUG INTERACTION [None]
  - HYPERGLYCAEMIA [None]
  - HYPOGLYCAEMIA [None]
  - MOBILITY DECREASED [None]
